FAERS Safety Report 22843925 (Version 8)
Quarter: 2025Q1

REPORT INFORMATION
  Report Type: Report from Study
  Country: US (occurrence: US)
  Receive Date: 20230821
  Receipt Date: 20250102
  Transmission Date: 20250408
  Serious: Yes (Other)
  Sender: NOVARTIS
  Company Number: US-002147023-NVSC2023US181676

PATIENT

DRUGS (1)
  1. KESIMPTA [Suspect]
     Active Substance: OFATUMUMAB
     Indication: Product used for unknown indication
     Route: 065
     Dates: start: 20230815

REACTIONS (9)
  - Multiple sclerosis [Unknown]
  - Nausea [Unknown]
  - Feeling hot [Unknown]
  - Somnolence [Unknown]
  - Temperature intolerance [Unknown]
  - Dizziness [Unknown]
  - Irritability [Unknown]
  - Fatigue [Unknown]
  - Hypersensitivity [Unknown]
